FAERS Safety Report 8156951-8 (Version None)
Quarter: 2012Q1

REPORT INFORMATION
  Report Type: 
  Country: None (occurrence: None)
  Receive Date: 20120103
  Receipt Date: 20111003
  Transmission Date: 20120608
  Serious: No
  Sender: FDA-Public Use
  Company Number: AE-2011-002032

PATIENT
  Age: 56 Year
  Sex: Male

DRUGS (7)
  1. CITALOPRAM HYDROBROMIDE [Concomitant]
  2. GABAPENTIN [Concomitant]
  3. TRAMADOL HCL [Concomitant]
  4. PROMETHAZINE [Concomitant]
  5. PEGASYS [Concomitant]
  6. COPEGUS [Concomitant]
  7. INCIVEK [Suspect]
     Dosage: 2250 MG (750 MG, 3 IN 1 D), ORAL
     Route: 048
     Dates: start: 20110913

REACTIONS (8)
  - DIZZINESS [None]
  - NIGHTMARE [None]
  - FATIGUE [None]
  - MOOD SWINGS [None]
  - NAUSEA [None]
  - THINKING ABNORMAL [None]
  - FEELING ABNORMAL [None]
  - DECREASED APPETITE [None]
